FAERS Safety Report 14243910 (Version 2)
Quarter: 2018Q1

REPORT INFORMATION
  Report Type: Spontaneous
  Country: None (occurrence: US)
  Receive Date: 20171201
  Receipt Date: 20180104
  Transmission Date: 20180508
  Serious: Yes (Other)
  Sender: FDA-Public Use
  Company Number: US-ALLERGAN-1767593US

PATIENT
  Age: 35 Year
  Sex: Female
  Weight: 56.24 kg

DRUGS (2)
  1. LINZESS [Suspect]
     Active Substance: LINACLOTIDE
     Indication: CONSTIPATION
     Dosage: 1 DF, QD
     Route: 048
     Dates: start: 20171109, end: 20171110
  2. PREDNISONE. [Concomitant]
     Active Substance: PREDNISONE
     Indication: HYPERSENSITIVITY
     Dosage: 20 MG, BID

REACTIONS (13)
  - Malaise [Not Recovered/Not Resolved]
  - Dizziness [Recovered/Resolved]
  - Lipase increased [Unknown]
  - Muscle tightness [Recovered/Resolved]
  - Anxiety [Recovered/Resolved]
  - Hyperthermia [Recovered/Resolved]
  - Palpitations [Recovered/Resolved]
  - Head discomfort [Recovered/Resolved]
  - Neck pain [Unknown]
  - Paraesthesia [Recovered/Resolved]
  - Back pain [Recovered/Resolved]
  - Nausea [Unknown]
  - Headache [Unknown]

NARRATIVE: CASE EVENT DATE: 20171109
